FAERS Safety Report 4679543-1 (Version None)
Quarter: 2005Q2

REPORT INFORMATION
  Report Type: 
  Country: None (occurrence: None)
  Receive Date: 20050311
  Receipt Date: 20050311
  Transmission Date: 20051028
  Serious: Yes (Other)
  Sender: FDA-Public Use
  Company Number: None

PATIENT
  Age: 70 Year
  Sex: Female
  Weight: 60.782 kg

DRUGS (1)
  1. MEVACOR [Suspect]

REACTIONS (2)
  - CHROMATURIA [None]
  - DIZZINESS [None]
